FAERS Safety Report 8401236-5 (Version None)
Quarter: 2012Q2

REPORT INFORMATION
  Report Type: 
  Country: None (occurrence: None)
  Receive Date: 20120601
  Receipt Date: 20120528
  Transmission Date: 20120825
  Serious: Yes (Other)
  Sender: FDA-Public Use
  Company Number: PHHY2012AU045773

PATIENT
  Sex: Female

DRUGS (3)
  1. CLOZARIL [Suspect]
     Dosage: 50 MG, UNK
     Dates: start: 20120316, end: 20120511
  2. CLOZARIL [Suspect]
     Dosage: UNK UKN, UNK
     Dates: start: 20120525
  3. VALPROIC ACID [Concomitant]
     Dosage: UNK UKN, UNK
     Dates: start: 20120511

REACTIONS (1)
  - MENTAL IMPAIRMENT [None]
